FAERS Safety Report 15330592 (Version 1)
Quarter: 2018Q3

REPORT INFORMATION
  Report Type: Report from Study
  Country: JP (occurrence: JP)
  Receive Date: 20180829
  Receipt Date: 20180829
  Transmission Date: 20181010
  Serious: Yes (Other)
  Sender: FDA-Public Use
  Company Number: JP-PFIZER INC-2018345144

PATIENT

DRUGS (2)
  1. PACLITAXEL. [Suspect]
     Active Substance: PACLITAXEL
     Indication: NON-SMALL CELL LUNG CANCER
     Dosage: 90 MG/M2, CYCLIC (DAY 1 AND 8 EVERY 3 WEEKS)
     Route: 042
  2. TS?1 [Suspect]
     Active Substance: GIMERACIL\OTERACIL\TEGAFUR
     Indication: NON-SMALL CELL LUNG CANCER
     Dosage: 80 MG/M2/DAY, TWICE A DAY ON DAYS 1?14, FOLLOWED BY A 7?DAY REST PERIOD, REPEATED EVERY 3 WEEKS
     Route: 048

REACTIONS (3)
  - Diarrhoea [Unknown]
  - Stomatitis [Unknown]
  - International normalised ratio increased [Unknown]
